FAERS Safety Report 4739975-X (Version None)
Quarter: 2005Q3

REPORT INFORMATION
  Report Type: 
  Country: None (occurrence: None)
  Receive Date: 20050810
  Receipt Date: 20031030
  Transmission Date: 20060218
  Serious: No
  Sender: FDA-Public Use
  Company Number: US-GLAXOSMITHKLINE-A0432747A

PATIENT
  Sex: Female

DRUGS (3)
  1. PAXIL [Suspect]
     Indication: DEPRESSION
     Dosage: 20MG PER DAY
     Route: 048
     Dates: start: 20000323
  2. BACLOFEN [Concomitant]
     Route: 048
  3. AVONEX [Concomitant]
     Indication: MULTIPLE SCLEROSIS

REACTIONS (9)
  - ASTHENIA [None]
  - DEHYDRATION [None]
  - DRUG WITHDRAWAL SYNDROME [None]
  - GAIT DISTURBANCE [None]
  - MUSCULOSKELETAL STIFFNESS [None]
  - NAUSEA [None]
  - PARAESTHESIA [None]
  - VERTIGO [None]
  - VOMITING [None]
